FAERS Safety Report 25443347 (Version 1)
Quarter: 2025Q2

REPORT INFORMATION
  Report Type: Spontaneous
  Country: US (occurrence: US)
  Receive Date: 20250617
  Receipt Date: 20250617
  Transmission Date: 20250717
  Serious: No
  Sender: ROCHE
  Company Number: US-ROCHE-10000310042

PATIENT
  Age: 47 Year
  Sex: Female
  Weight: 81.64 kg

DRUGS (1)
  1. OCREVUS [Suspect]
     Active Substance: OCRELIZUMAB
     Indication: Relapsing-remitting multiple sclerosis
     Route: 042
     Dates: start: 20210511

REACTIONS (8)
  - Dyspnoea [Unknown]
  - Heart rate irregular [Unknown]
  - Labile blood pressure [Unknown]
  - Malaise [Unknown]
  - Heart rate increased [Unknown]
  - Blood pressure increased [Unknown]
  - Throat tightness [Unknown]
  - Skin tightness [Unknown]

NARRATIVE: CASE EVENT DATE: 20210511
